FAERS Safety Report 25033551 (Version 1)
Quarter: 2025Q1

REPORT INFORMATION
  Report Type: Spontaneous
  Country: US (occurrence: US)
  Receive Date: 20250303
  Receipt Date: 20250303
  Transmission Date: 20250409
  Serious: No
  Sender: SANOFI AVENTIS
  Company Number: US-SA-2025SA061921

PATIENT
  Age: 85 Year
  Sex: Female
  Weight: 62.27 kg

DRUGS (7)
  1. DUPIXENT [Suspect]
     Active Substance: DUPILUMAB
     Indication: Rash
     Dosage: 300 MG, QOW
     Route: 058
     Dates: start: 20231120
  2. ALLEGRA ALLERGY [Concomitant]
     Active Substance: FEXOFENADINE HYDROCHLORIDE
  3. TACROLIMUS [Concomitant]
     Active Substance: TACROLIMUS
  4. CLOBETASOL [Concomitant]
     Active Substance: CLOBETASOL
  5. TYLENOL [Concomitant]
     Active Substance: ACETAMINOPHEN
  6. ISRADIPINE [Concomitant]
     Active Substance: ISRADIPINE
  7. INSULIN LISPRO [Concomitant]
     Active Substance: INSULIN LISPRO

REACTIONS (2)
  - Rash [Unknown]
  - Product use in unapproved indication [Unknown]

NARRATIVE: CASE EVENT DATE: 20231120
